FAERS Safety Report 12661763 (Version 5)
Quarter: 2016Q4

REPORT INFORMATION
  Report Type: Report from Study
  Country: JP (occurrence: JP)
  Receive Date: 20160817
  Receipt Date: 20161114
  Transmission Date: 20170207
  Serious: Yes (Hospitalization)
  Sender: FDA-Public Use
  Company Number: JP-TEVA-684358ISR

PATIENT
  Age: 75 Year
  Sex: Female
  Weight: 57 kg

DRUGS (8)
  1. EICOSAPENTAENOIC ACID ETHYL ESTER [Concomitant]
     Active Substance: ICOSAPENT ETHYL
     Dosage: ONGOING
  2. DOPACOL [Concomitant]
     Active Substance: CARBIDOPA\LEVODOPA
     Dosage: ONGOING
  3. EQUA [Concomitant]
     Active Substance: VILDAGLIPTIN
     Dosage: ONGOING
  4. REQUIP [Concomitant]
     Active Substance: ROPINIROLE HYDROCHLORIDE
     Dosage: ONGOING
  5. NICERGOLINE TOWA [Concomitant]
     Dosage: ONGOING
  6. RASAGILINE [Suspect]
     Active Substance: RASAGILINE
     Indication: PARKINSON^S DISEASE
     Dosage: 1 MILLIGRAM DAILY; DBPC: RASAGILINE 0.5 MG, 1.0 MG OR PLACEBO
     Route: 048
     Dates: start: 20160315, end: 20160906
  7. LANSOPRAZOLE TOWA [Concomitant]
     Dosage: ONGOING
  8. MAGNESIUM OXIDE. [Concomitant]
     Active Substance: MAGNESIUM OXIDE
     Dosage: ONGOING

REACTIONS (1)
  - Cellulitis [Recovered/Resolved]

NARRATIVE: CASE EVENT DATE: 20160714
